FAERS Safety Report 18914720 (Version 1)
Quarter: 2021Q1

REPORT INFORMATION
  Report Type: Report from Study
  Country: US (occurrence: US)
  Receive Date: 20210218
  Receipt Date: 20210218
  Transmission Date: 20210420
  Serious: Yes (Other)
  Sender: FDA-Public Use
  Company Number: US-GILEAD-2021-0517525

PATIENT

DRUGS (8)
  1. COBICISTAT [Suspect]
     Active Substance: COBICISTAT
     Indication: NON-HODGKIN^S LYMPHOMA
  2. DOXORUBICIN [Concomitant]
     Active Substance: DOXORUBICIN
  3. COBICISTAT [Suspect]
     Active Substance: COBICISTAT
     Indication: HIV INFECTION
     Route: 065
  4. RITUXAN [Concomitant]
     Active Substance: RITUXIMAB
  5. VINCRISTINE [Concomitant]
     Active Substance: VINCRISTINE
  6. ETOPOSIDE. [Concomitant]
     Active Substance: ETOPOSIDE
  7. PREDNISONE. [Concomitant]
     Active Substance: PREDNISONE
  8. CYCLOPHOSPHAMIDE. [Concomitant]
     Active Substance: CYCLOPHOSPHAMIDE

REACTIONS (1)
  - Gastrointestinal obstruction [Unknown]
